FAERS Safety Report 19561094 (Version 1)
Quarter: 2021Q3

REPORT INFORMATION
  Report Type: Report from Study
  Country: DE (occurrence: DE)
  Receive Date: 20210715
  Receipt Date: 20210715
  Transmission Date: 20211014
  Serious: Yes (Hospitalization, Other)
  Sender: FDA-Public Use
  Company Number: DE-TAKEDA-DE202022345

PATIENT
  Age: 78 Year
  Sex: Female
  Weight: 68 kg

DRUGS (4)
  1. COAGULATION FACTOR VIII (PORCINE, RECOMBINANT) [Suspect]
     Active Substance: ANTIHEMOPHILIC FACTOR PORCINE, B-DOMAIN TRUNCATED RECOMBINANT
     Indication: ACQUIRED HAEMOPHILIA
     Dosage: 100 MILLIGRAM/KILOGRAM, AS REQD
     Route: 042
     Dates: start: 20180620, end: 20180622
  2. COAGULATION FACTOR VIII (PORCINE, RECOMBINANT) [Suspect]
     Active Substance: ANTIHEMOPHILIC FACTOR PORCINE, B-DOMAIN TRUNCATED RECOMBINANT
     Dosage: 100 MILLIGRAM/KILOGRAM, AS REQD
     Route: 042
     Dates: start: 20180620, end: 20180622
  3. COAGULATION FACTOR VIII (PORCINE, RECOMBINANT) [Suspect]
     Active Substance: ANTIHEMOPHILIC FACTOR PORCINE, B-DOMAIN TRUNCATED RECOMBINANT
     Indication: ACQUIRED HAEMOPHILIA
     Dosage: 100 MILLIGRAM/KILOGRAM, AS REQD
     Route: 042
     Dates: start: 20180620, end: 20180622
  4. COAGULATION FACTOR VIII (PORCINE, RECOMBINANT) [Suspect]
     Active Substance: ANTIHEMOPHILIC FACTOR PORCINE, B-DOMAIN TRUNCATED RECOMBINANT
     Dosage: 100 MILLIGRAM/KILOGRAM, AS REQD
     Route: 042
     Dates: start: 20180620, end: 20180622

REACTIONS (1)
  - Bleeding varicose vein [Recovered/Resolved]

NARRATIVE: CASE EVENT DATE: 20181126
